FAERS Safety Report 18120628 (Version 3)
Quarter: 2020Q3

REPORT INFORMATION
  Report Type: Spontaneous
  Country: AU (occurrence: AU)
  Receive Date: 20200806
  Receipt Date: 20200827
  Transmission Date: 20201103
  Serious: Yes (Hospitalization, Other)
  Sender: FDA-Public Use
  Company Number: AU-MYLANLABS-2020M1067852

PATIENT
  Age: 40 Year
  Sex: Male
  Weight: 126 kg

DRUGS (7)
  1. OLANZAPINE. [Concomitant]
     Active Substance: OLANZAPINE
     Dosage: 10 MG BD
  2. LORAZEPAM. [Concomitant]
     Active Substance: LORAZEPAM
     Dosage: 1 MG, BD
  3. LITHIUM. [Concomitant]
     Active Substance: LITHIUM
     Dosage: 450 MG BD
  4. SERETID [Concomitant]
     Indication: ASTHMA
     Dosage: TWICE DAILY
  5. CLOZARIL [Suspect]
     Active Substance: CLOZAPINE
     Indication: SCHIZOPHRENIA
     Dosage: 200 MILLIGRAM
     Route: 048
     Dates: start: 20200706, end: 20200724
  6. PANTOPRAZOLE [Concomitant]
     Active Substance: PANTOPRAZOLE
     Indication: GASTROOESOPHAGEAL REFLUX DISEASE
     Dosage: 40 MILLIGRAM, DAILY
  7. COLCHICINE. [Concomitant]
     Active Substance: COLCHICINE
     Dosage: 500 MICROGRAM, DAILY

REACTIONS (17)
  - Myocarditis [Unknown]
  - Electrocardiogram ST segment elevation [Unknown]
  - Non-high-density lipoprotein cholesterol increased [Unknown]
  - Blood cholesterol increased [Unknown]
  - Pericarditis [Unknown]
  - Blood glucose increased [Recovering/Resolving]
  - Blood bicarbonate increased [Not Recovered/Not Resolved]
  - Anion gap increased [Recovering/Resolving]
  - Blood alkaline phosphatase increased [Unknown]
  - Chest pain [Unknown]
  - Blood triglycerides increased [Not Recovered/Not Resolved]
  - C-reactive protein increased [Recovered/Resolved]
  - Troponin increased [Recovered/Resolved]
  - High density lipoprotein increased [Unknown]
  - Blood phosphorus increased [Recovered/Resolved]
  - Alanine aminotransferase increased [Unknown]
  - Gamma-glutamyltransferase increased [Unknown]

NARRATIVE: CASE EVENT DATE: 202007
